FAERS Safety Report 19398128 (Version 2)
Quarter: 2022Q1

REPORT INFORMATION
  Report Type: Spontaneous
  Country: US (occurrence: US)
  Receive Date: 20210610
  Receipt Date: 20220125
  Transmission Date: 20220424
  Serious: Yes (Other)
  Sender: FDA-Public Use
  Company Number: US-GILEAD-2021-0534898

PATIENT
  Age: 47 Year
  Sex: Female
  Weight: 81.64 kg

DRUGS (61)
  1. TRUVADA [Suspect]
     Active Substance: EMTRICITABINE\TENOFOVIR DISOPROXIL FUMARATE
     Indication: HIV infection
     Dosage: UNK
     Route: 048
     Dates: start: 2012
  2. TRUVADA [Suspect]
     Active Substance: EMTRICITABINE\TENOFOVIR DISOPROXIL FUMARATE
     Dosage: UNK
     Route: 048
     Dates: start: 20120208, end: 20170412
  3. ATRIPLA [Suspect]
     Active Substance: EFAVIRENZ\EMTRICITABINE\TENOFOVIR DISOPROXIL FUMARATE
     Indication: HIV infection
     Dosage: UNK
     Route: 048
     Dates: start: 20100129, end: 20101222
  4. BIKTARVY [Concomitant]
     Active Substance: BICTEGRAVIR SODIUM\EMTRICITABINE\TENOFOVIR ALAFENAMIDE FUMARATE
  5. DESCOVY [Concomitant]
     Active Substance: EMTRICITABINE\TENOFOVIR ALAFENAMIDE FUMARATE
  6. NORVIR [Concomitant]
     Active Substance: RITONAVIR
  7. PREZISTA [Concomitant]
     Active Substance: DARUNAVIR ETHANOLATE
  8. ADVAIR HFA [Concomitant]
     Active Substance: FLUTICASONE PROPIONATE\SALMETEROL XINAFOATE
  9. ALBUTEROL [Concomitant]
     Active Substance: ALBUTEROL
  10. ALPRAZOLAM [Concomitant]
     Active Substance: ALPRAZOLAM
  11. AMOXICILLIN\CLAVULANIC ACID [Concomitant]
     Active Substance: AMOXICILLIN\CLAVULANIC ACID
  12. AMOXICILLIN [Concomitant]
     Active Substance: AMOXICILLIN
  13. AMPHETAMINE [Concomitant]
     Active Substance: AMPHETAMINE
  14. AZITHROMYCIN [Concomitant]
     Active Substance: AZITHROMYCIN
  15. BENZONATATE [Concomitant]
     Active Substance: BENZONATATE
  16. CALCITONIN [Concomitant]
     Active Substance: CALCITONIN
  17. CEFDINIR [Concomitant]
     Active Substance: CEFDINIR
  18. CEPHALEXIN [Concomitant]
     Active Substance: CEPHALEXIN
  19. CHLORTHALIDONE [Concomitant]
     Active Substance: CHLORTHALIDONE
  20. CIPROFLOXACIN [Concomitant]
     Active Substance: CIPROFLOXACIN
  21. CLOMIPRAMINE [Concomitant]
     Active Substance: CLOMIPRAMINE
  22. CLOTRIMAZOLE [Concomitant]
     Active Substance: CLOTRIMAZOLE
  23. COMBIVENT [Concomitant]
     Active Substance: ALBUTEROL SULFATE\IPRATROPIUM BROMIDE
  24. CYCLOBENZAPRINE [Concomitant]
     Active Substance: CYCLOBENZAPRINE
  25. CYMBALTA [Concomitant]
     Active Substance: DULOXETINE HYDROCHLORIDE
  26. DICLOFENAC [Concomitant]
     Active Substance: DICLOFENAC
  27. DIPHENHYDRAMINE [Concomitant]
     Active Substance: DIPHENHYDRAMINE
  28. DOXYCYCLINE [Concomitant]
     Active Substance: DOXYCYCLINE
  29. FEXOFENADINE [Concomitant]
     Active Substance: FEXOFENADINE HYDROCHLORIDE
  30. FLUCONAZOLE [Concomitant]
     Active Substance: FLUCONAZOLE
  31. FLUTICASONE [Concomitant]
     Active Substance: FLUTICASONE
  32. FUROSEMIDE [Concomitant]
     Active Substance: FUROSEMIDE
  33. GABAPENTIN [Concomitant]
     Active Substance: GABAPENTIN
  34. HALOPERIDOL [Concomitant]
     Active Substance: HALOPERIDOL
  35. HYDROCODONE [Concomitant]
     Active Substance: HYDROCODONE
  36. HYDROXYZINE [Concomitant]
     Active Substance: HYDROXYZINE HYDROCHLORIDE
  37. LEVOFLOXACIN [Concomitant]
     Active Substance: LEVOFLOXACIN
  38. LEVOTHYROXINE [Concomitant]
     Active Substance: LEVOTHYROXINE
  39. LIDODERM [Concomitant]
     Active Substance: LIDOCAINE
  40. LINZESS [Concomitant]
     Active Substance: LINACLOTIDE
  41. LORATADINE [Concomitant]
     Active Substance: LORATADINE
  42. MELOXICAM [Concomitant]
     Active Substance: MELOXICAM
  43. METRONIDAZOLE [Concomitant]
     Active Substance: METRONIDAZOLE
  44. MONTELUKAST [Concomitant]
     Active Substance: MONTELUKAST SODIUM
  45. MUPIROCIN [Concomitant]
     Active Substance: MUPIROCIN
  46. NYSTATIN [Concomitant]
     Active Substance: NYSTATIN
  47. ONDANSETRON [Concomitant]
     Active Substance: ONDANSETRON
  48. OXYCODONE [Concomitant]
     Active Substance: OXYCODONE
  49. PANTOPRAZOLE [Concomitant]
     Active Substance: PANTOPRAZOLE
  50. PAROXETINE [Concomitant]
     Active Substance: PAROXETINE
  51. PHENTERMINE [Concomitant]
     Active Substance: PHENTERMINE
  52. POTASSIUM [Concomitant]
     Active Substance: POTASSIUM
  53. PREDNISONE [Concomitant]
     Active Substance: PREDNISONE
  54. PREMARIN [Concomitant]
     Active Substance: ESTROGENS, CONJUGATED
  55. PROMETHAZINE [Concomitant]
     Active Substance: PROMETHAZINE HYDROCHLORIDE
  56. SERTRALINE [Concomitant]
     Active Substance: SERTRALINE HYDROCHLORIDE
  57. SULFAMETHOXAZOLE [Concomitant]
     Active Substance: SULFAMETHOXAZOLE
  58. SULFATRIM [Concomitant]
     Active Substance: SULFAMETHOXAZOLE\TRIMETHOPRIM
  59. TOVIAZ [Concomitant]
     Active Substance: FESOTERODINE FUMARATE
  60. TRAZODONE [Concomitant]
     Active Substance: TRAZODONE HYDROCHLORIDE
  61. VITAMIN D3 [Concomitant]
     Active Substance: CHOLECALCIFEROL

REACTIONS (12)
  - Osteoporosis [Not Recovered/Not Resolved]
  - Multiple fractures [Unknown]
  - Femur fracture [Not Recovered/Not Resolved]
  - Bone density decreased [Unknown]
  - Emotional distress [Not Recovered/Not Resolved]
  - Anhedonia [Not Recovered/Not Resolved]
  - Anxiety [Not Recovered/Not Resolved]
  - Pain [Not Recovered/Not Resolved]
  - Fibula fracture [Not Recovered/Not Resolved]
  - Humerus fracture [Not Recovered/Not Resolved]
  - Foot fracture [Not Recovered/Not Resolved]
  - Hypoaesthesia [Unknown]

NARRATIVE: CASE EVENT DATE: 20110602
